FAERS Safety Report 25078943 (Version 3)
Quarter: 2025Q2

REPORT INFORMATION
  Report Type: Spontaneous
  Country: US (occurrence: US)
  Receive Date: 20250314
  Receipt Date: 20250605
  Transmission Date: 20250716
  Serious: No
  Sender: ITALFARMACO SPA
  Company Number: US-ITALFARMACO SPA-2172906

PATIENT
  Age: 14 Year
  Sex: Male
  Weight: 77 kg

DRUGS (5)
  1. DUVYZAT [Suspect]
     Active Substance: GIVINOSTAT
     Indication: Duchenne muscular dystrophy
     Dates: start: 20250103
  2. EXONDYS 51 [Concomitant]
     Active Substance: ETEPLIRSEN
  3. ZOLEDRONIC ACID [Concomitant]
     Active Substance: ZOLEDRONIC ACID
  4. VITAMIN D [Concomitant]
     Active Substance: VITAMIN D NOS
  5. EMFLAZA [Concomitant]
     Active Substance: DEFLAZACORT

REACTIONS (6)
  - Platelet count decreased [Unknown]
  - Laboratory test abnormal [Unknown]
  - Thrombocytopenia [Not Recovered/Not Resolved]
  - Platelet count abnormal [Unknown]
  - Diarrhoea [Unknown]
  - Contusion [Unknown]
